FAERS Safety Report 5850432-X (Version None)
Quarter: 2008Q3

REPORT INFORMATION
  Report Type: 
  Country: None (occurrence: None)
  Receive Date: 20080818
  Receipt Date: 20080806
  Transmission Date: 20090109
  Serious: Yes (Other)
  Sender: FDA-Public Use
  Company Number: 2008US002084

PATIENT

DRUGS (1)
  1. LEXISCAN [Suspect]
     Indication: CARDIAC IMAGING PROCEDURE
     Dates: start: 20080805

REACTIONS (2)
  - CONVULSION [None]
  - HEART RATE INCREASED [None]
